FAERS Safety Report 13565519 (Version 7)
Quarter: 2017Q3

REPORT INFORMATION
  Report Type: Spontaneous
  Country: US (occurrence: US)
  Receive Date: 20170519
  Receipt Date: 20170720
  Transmission Date: 20171127
  Serious: Yes (Other)
  Sender: FDA-Public Use
  Company Number: US-ACTELION-A-US2017-154079

PATIENT
  Age: 70 Year
  Sex: Male
  Weight: 104.6 kg

DRUGS (6)
  1. UPTRAVI [Suspect]
     Active Substance: SELEXIPAG
     Indication: PULMONARY ARTERIAL HYPERTENSION
     Dosage: 1000 MCG, UNK
     Route: 048
  2. AMBRISENTAN [Suspect]
     Active Substance: AMBRISENTAN
     Indication: PULMONARY ARTERIAL HYPERTENSION
     Dosage: 10 MG, QD
     Route: 065
     Dates: start: 20150317
  3. SILDENAFIL. [Concomitant]
     Active Substance: SILDENAFIL
     Indication: PULMONARY ARTERIAL HYPERTENSION
  4. REVATIO [Concomitant]
     Active Substance: SILDENAFIL CITRATE
  5. UPTRAVI [Suspect]
     Active Substance: SELEXIPAG
     Dosage: 800 MCG, UNK
     Route: 048
  6. UPTRAVI [Suspect]
     Active Substance: SELEXIPAG
     Dosage: 600 MCG, BID
     Route: 048

REACTIONS (14)
  - Arthralgia [Not Recovered/Not Resolved]
  - Middle insomnia [Not Recovered/Not Resolved]
  - Insomnia [Not Recovered/Not Resolved]
  - Diarrhoea [Unknown]
  - Blood glucose decreased [Unknown]
  - Drug ineffective [Unknown]
  - Peripheral swelling [Recovering/Resolving]
  - Myalgia [Not Recovered/Not Resolved]
  - Pain in extremity [Not Recovered/Not Resolved]
  - Depression [Not Recovered/Not Resolved]
  - Nervousness [Not Recovered/Not Resolved]
  - Agitation [Not Recovered/Not Resolved]
  - Restlessness [Not Recovered/Not Resolved]
  - Headache [Not Recovered/Not Resolved]
